FAERS Safety Report 7213099-4 (Version None)
Quarter: 2010Q4

REPORT INFORMATION
  Report Type: 
  Country: None (occurrence: None)
  Receive Date: 20101229
  Receipt Date: 20101213
  Transmission Date: 20110411
  Serious: Yes (Other)
  Sender: FDA-Public Use
  Company Number: SI-ACCORD-007414

PATIENT
  Age: 26 Year
  Sex: Female
  Weight: 60 kg

DRUGS (3)
  1. IRBESARTAN [Suspect]
     Indication: HYPERTENSION
     Dosage: 300.00-MG-1.0DAYS
  2. METHYLDOPA [Suspect]
     Indication: HYPERTENSION
     Dosage: 500.00-MG-4.00PE R-1.0DAYS
  3. LYSINE ACETYLSALICYLIC (LYSINE ACETYLSALICYLIC) [Suspect]
     Indication: HYPERTENSION
     Dosage: 100.00-MG-1.0DAYS

REACTIONS (5)
  - AMNIOTIC FLUID VOLUME DECREASED [None]
  - CAESAREAN SECTION [None]
  - DRUG EXPOSURE DURING PREGNANCY [None]
  - PRE-ECLAMPSIA [None]
  - PREMATURE LABOUR [None]
